FAERS Safety Report 14915134 (Version 3)
Quarter: 2018Q2

REPORT INFORMATION
  Report Type: Report from Study
  Country: DE (occurrence: DE)
  Receive Date: 20180518
  Receipt Date: 20180529
  Transmission Date: 20180711
  Serious: Yes (Death, Hospitalization, Other)
  Sender: FDA-Public Use
  Company Number: DE-B.I. PHARMACEUTICALS,INC./RIDGEFIELD-2015-BI-39390II

PATIENT
  Age: 79 Year
  Sex: Female
  Weight: 51.8 kg

DRUGS (11)
  1. SOBELIN [Concomitant]
     Active Substance: CLINDAMYCIN HYDROCHLORIDE
     Indication: ANTIBIOTIC THERAPY
     Route: 048
     Dates: start: 20150716, end: 20150720
  2. BIBW 2992 [Suspect]
     Active Substance: AFATINIB
     Indication: PANCREATIC CARCINOMA METASTATIC
     Route: 048
     Dates: start: 20150219, end: 20150713
  3. METROGEL [Concomitant]
     Active Substance: METRONIDAZOLE
     Indication: ANTIBIOTIC PROPHYLAXIS
     Route: 050
     Dates: start: 20150521
  4. ACICLOVIR [Concomitant]
     Active Substance: ACYCLOVIR
     Indication: ANTIVIRAL TREATMENT
     Route: 048
     Dates: start: 20150408
  5. GEMCITABINE [Suspect]
     Active Substance: GEMCITABINE\GEMCITABINE HYDROCHLORIDE
     Indication: PANCREATIC CARCINOMA METASTATIC
     Route: 042
     Dates: start: 20150219, end: 20150708
  6. CANESTEN [Concomitant]
     Active Substance: CLOTRIMAZOLE
     Indication: ANTIFUNGAL TREATMENT
     Route: 050
     Dates: start: 20150402
  7. DIBEN DRINK [Concomitant]
     Indication: PARENTERAL NUTRITION
     Route: 048
     Dates: start: 20150226
  8. KABIVEN [Concomitant]
     Active Substance: AMINO ACIDS\ANHYDROUS DEXTROSE\CALCIUM CHLORIDE\MAGNESIUM SULFATE HEPTAHYDRATE\POTASSIUM CHLORIDE\SODIUM ACETATE\SODIUM GLYCEROPHOSPHATE ANHYDROUS\SOYBEAN OIL
     Indication: PARENTERAL NUTRITION
     Route: 065
  9. LYRICA [Concomitant]
     Active Substance: PREGABALIN
     Indication: NEURALGIA
     Route: 048
     Dates: start: 20150408
  10. EXCIPIAL U LIPLOLIO [Concomitant]
     Indication: ANTIBIOTIC PROPHYLAXIS
     Route: 050
     Dates: start: 20150521
  11. CIPROFLOXACIN. [Concomitant]
     Active Substance: CIPROFLOXACIN
     Indication: ANTIBIOTIC THERAPY
     Route: 048
     Dates: start: 20150713, end: 20150720

REACTIONS (5)
  - Staphylococcal sepsis [Unknown]
  - Malignant neoplasm progression [Fatal]
  - Pneumonia [Unknown]
  - Gouty arthritis [Recovered/Resolved]
  - Erysipelas [Recovered/Resolved with Sequelae]

NARRATIVE: CASE EVENT DATE: 20150720
